FAERS Safety Report 4331650-9 (Version None)
Quarter: 2004Q2

REPORT INFORMATION
  Report Type: 
  Country: None (occurrence: None)
  Receive Date: 20040401
  Receipt Date: 20040401
  Transmission Date: 20050107
  Serious: Yes (Hospitalization)
  Sender: FDA-Public Use
  Company Number: None

PATIENT
  Age: 65 Year
  Sex: Female
  Weight: 45.3597 kg

DRUGS (2)
  1. ROCEPHIN [Suspect]
     Indication: CELLULITIS
     Dosage: 1 GM IVP USA QD
     Route: 042
     Dates: start: 20040316
  2. ROCEPHIN [Suspect]
     Indication: CELLULITIS
     Dosage: 1 GM IVP USA QD
     Route: 042
     Dates: start: 20040317

REACTIONS (2)
  - CONTUSION [None]
  - OEDEMA PERIPHERAL [None]
